FAERS Safety Report 10379103 (Version 2)
Quarter: 2014Q3

REPORT INFORMATION
  Report Type: Spontaneous
  Country: CA (occurrence: CA)
  Receive Date: 20140812
  Receipt Date: 20140812
  Transmission Date: 20150326
  Serious: Yes (Life-Threatening, Hospitalization)
  Sender: FDA-Public Use
  Company Number: CA-PFIZER INC-2012191976

PATIENT
  Age: 39 Week
  Sex: Female
  Weight: 2.9 kg

DRUGS (6)
  1. TYLENOL WITH CODEINE [Suspect]
     Active Substance: ACETAMINOPHEN\CODEINE PHOSPHATE
     Indication: PAIN
     Dosage: 3 DF, UNK
     Route: 063
  2. IBUPROFEN. [Suspect]
     Active Substance: IBUPROFEN
     Indication: AFTERBIRTH PAIN
     Route: 063
  3. CODEINE [Suspect]
     Active Substance: CODEINE
     Indication: PAIN
     Dosage: 2.1 MG/KG
     Route: 063
  4. CODEINE [Suspect]
     Active Substance: CODEINE
     Dosage: 1.4 MG/KG, 3X/DAY
  5. ACETAMINOPHEN. [Suspect]
     Active Substance: ACETAMINOPHEN
     Indication: AFTERBIRTH PAIN
     Route: 063
  6. OXYCODONE [Suspect]
     Active Substance: OXYCODONE
     Indication: AFTERBIRTH PAIN
     Dosage: EVERY 4 HOURS FOR 2 DAYS, AND EVERY 6 HOURS FOR A SUBSEQUENT 2 DAYS
     Route: 063

REACTIONS (3)
  - Lethargy [Unknown]
  - Exposure during breast feeding [Recovered/Resolved]
  - Respiratory arrest [Recovered/Resolved]
